FAERS Safety Report 6578012-1 (Version None)
Quarter: 2010Q1

REPORT INFORMATION
  Report Type: 
  Country: None (occurrence: None)
  Receive Date: 20100211
  Receipt Date: 20091229
  Transmission Date: 20100710
  Serious: Yes (Hospitalization)
  Sender: FDA-Public Use
  Company Number: US-BRISTOL-MYERS SQUIBB COMPANY-14870075

PATIENT
  Age: 51 Year
  Sex: Female

DRUGS (2)
  1. IXEMPRA KIT [Suspect]
     Indication: BREAST CANCER METASTATIC
     Dates: start: 20091015, end: 20090101
  2. XELODA [Suspect]
     Indication: BREAST CANCER METASTATIC
     Dates: start: 20091015

REACTIONS (4)
  - CONSTIPATION [None]
  - NAUSEA [None]
  - NEUTROPENIA [None]
  - VOMITING [None]
